FAERS Safety Report 7919999-1 (Version None)
Quarter: 2011Q4

REPORT INFORMATION
  Report Type: 
  Country: None (occurrence: None)
  Receive Date: 20111117
  Receipt Date: 20111108
  Transmission Date: 20120403
  Serious: Yes (Hospitalization)
  Sender: FDA-Public Use
  Company Number: DE-BRISTOL-MYERS SQUIBB COMPANY-16229932

PATIENT
  Age: 54 Year
  Sex: Female
  Weight: 63 kg

DRUGS (4)
  1. GEMCITABINE [Suspect]
     Indication: NON-SMALL CELL LUNG CANCER
     Dosage: LAST DOSE ADMIN ON 24-OCT-2011; TEMP DISCONTINUED ON 07-NOV-2011
     Route: 042
     Dates: start: 20110926
  2. CILENGITIDE [Suspect]
     Indication: NON-SMALL CELL LUNG CANCER
     Dosage: LAST DOSE ADMIN ON 31-OCT-2011 (6 INF); TEMP DISCONTINUED ON 07-NOV-2011.
     Route: 042
     Dates: start: 20110926
  3. CISPLATIN [Suspect]
     Indication: NON-SMALL CELL LUNG CANCER
     Dosage: LAST DOSE ADMIN ON 17-OCT-2011 (2ND INF); TEMP DISCONTINUED ON 07-NOV-2011.
     Route: 042
     Dates: start: 20110926
  4. CETUXIMAB [Suspect]
     Indication: NON-SMALL CELL LUNG CANCER
     Dosage: LAST DOSE ADMIN ON 31-OCT-2011 (INF 6); TEMPORARY DISCONTINUED ON 07-NOV-2011.
     Route: 042
     Dates: start: 20110926

REACTIONS (1)
  - AORTIC THROMBOSIS [None]
